FAERS Safety Report 7318093-0 (Version None)
Quarter: 2011Q1

REPORT INFORMATION
  Report Type: 
  Country: None (occurrence: None)
  Receive Date: 20110228
  Receipt Date: 20110217
  Transmission Date: 20110831
  Serious: Yes (Hospitalization)
  Sender: FDA-Public Use
  Company Number: US-BIOGENIDEC-2011BI003953

PATIENT
  Sex: Female

DRUGS (2)
  1. AVONEX [Suspect]
     Indication: MULTIPLE SCLEROSIS
     Route: 030
     Dates: start: 20060401
  2. AVONEX [Suspect]
     Route: 030

REACTIONS (3)
  - BLOOD PRESSURE INCREASED [None]
  - ILL-DEFINED DISORDER [None]
  - CHEST PAIN [None]
